FAERS Safety Report 19737279 (Version 1)
Quarter: 2021Q3

REPORT INFORMATION
  Report Type: Spontaneous
  Country: US (occurrence: US)
  Receive Date: 20210823
  Receipt Date: 20210823
  Transmission Date: 20211014
  Serious: Yes (Hospitalization, Other)
  Sender: FDA-Public Use
  Company Number: US-ELI_LILLY_AND_COMPANY-US202108005935

PATIENT
  Age: 44 Year
  Sex: Female

DRUGS (11)
  1. GALCANEZUMAB [Concomitant]
     Active Substance: GALCANEZUMAB
     Indication: PRODUCT USED FOR UNKNOWN INDICATION
  2. VYVANSE [Concomitant]
     Active Substance: LISDEXAMFETAMINE DIMESYLATE
     Indication: PRODUCT USED FOR UNKNOWN INDICATION
     Dosage: UNK
     Dates: start: 20180906
  3. PROZAC [Suspect]
     Active Substance: FLUOXETINE HYDROCHLORIDE
     Indication: DEPRESSION
     Dosage: 60 MG, DAILY
     Route: 048
     Dates: start: 20170508
  4. MICONAZOLE. [Concomitant]
     Active Substance: MICONAZOLE
     Indication: PRODUCT USED FOR UNKNOWN INDICATION
  5. GABAPENTIN. [Concomitant]
     Active Substance: GABAPENTIN
     Indication: PRODUCT USED FOR UNKNOWN INDICATION
  6. REQUIP [Suspect]
     Active Substance: ROPINIROLE HYDROCHLORIDE
     Indication: TREMOR
     Dosage: 1 MG, BID
     Route: 048
     Dates: start: 20171127
  7. TRAZODONE [Concomitant]
     Active Substance: TRAZODONE HYDROCHLORIDE
     Indication: PRODUCT USED FOR UNKNOWN INDICATION
     Dosage: UNK
     Dates: start: 20170220
  8. DOXEPIN [Concomitant]
     Active Substance: DOXEPIN
     Indication: PRODUCT USED FOR UNKNOWN INDICATION
     Dosage: UNK
     Dates: start: 20161201
  9. OFATUMUMAB [Suspect]
     Active Substance: OFATUMUMAB
     Indication: RELAPSING MULTIPLE SCLEROSIS
     Dosage: 20 MG, UNKNOWN
     Route: 058
     Dates: start: 20170530
  10. TERIFLUNOMIDE. [Suspect]
     Active Substance: TERIFLUNOMIDE
     Indication: RELAPSING MULTIPLE SCLEROSIS
     Dosage: UNK UNK, UNKNOWN
     Route: 048
     Dates: start: 20170530
  11. NYSTATIN. [Concomitant]
     Active Substance: NYSTATIN
     Indication: PRODUCT USED FOR UNKNOWN INDICATION

REACTIONS (26)
  - Nitrite urine present [Unknown]
  - Blood calcium increased [Unknown]
  - Pruritus [Unknown]
  - Syncope [Recovered/Resolved]
  - Hypertension [Recovered/Resolved]
  - Carbon dioxide decreased [Unknown]
  - Gait disturbance [Unknown]
  - Weight decreased [Unknown]
  - Migraine [Unknown]
  - Arthralgia [Unknown]
  - Restless legs syndrome [Unknown]
  - Blood sodium decreased [Unknown]
  - Tachycardia [Recovered/Resolved]
  - Depressed mood [Unknown]
  - Protein urine present [Unknown]
  - Hypoaesthesia [Unknown]
  - Tremor [Unknown]
  - Haematuria [Recovered/Resolved]
  - Urine ketone body present [Unknown]
  - Dysphagia [Unknown]
  - Glomerular filtration rate decreased [Unknown]
  - Anaemia [Unknown]
  - Urinary retention [Unknown]
  - Urinary incontinence [Unknown]
  - Blood glucose increased [Unknown]
  - Loss of consciousness [Recovered/Resolved]

NARRATIVE: CASE EVENT DATE: 20170801
